FAERS Safety Report 18195353 (Version 2)
Quarter: 2020Q4

REPORT INFORMATION
  Report Type: Spontaneous
  Country: IT (occurrence: IT)
  Receive Date: 20200826
  Receipt Date: 20201008
  Transmission Date: 20210113
  Serious: Yes (Other)
  Sender: FDA-Public Use
  Company Number: IT-AUROBINDO-AUR-APL-2020-044587

PATIENT
  Age: 52 Year
  Sex: Male

DRUGS (2)
  1. PARACETAMOL TABLET [Suspect]
     Active Substance: ACETAMINOPHEN
     Indication: RHINITIS ALLERGIC
     Dosage: 1000 MILLIGRAM AS NECESSARY
     Route: 048
     Dates: start: 20191231, end: 20200102
  2. ACETYLSALICYLIC ACID [Suspect]
     Active Substance: ASPIRIN
     Indication: RHINITIS ALLERGIC
     Dosage: 500 MILLIGRAM AS NECESSARY
     Route: 048
     Dates: start: 20191231, end: 20200102

REACTIONS (2)
  - Drug hypersensitivity [Recovering/Resolving]
  - Angioedema [Recovering/Resolving]

NARRATIVE: CASE EVENT DATE: 20200101
